FAERS Safety Report 8522321-3 (Version None)
Quarter: 2012Q3

REPORT INFORMATION
  Report Type: 
  Country: None (occurrence: None)
  Receive Date: 20120719
  Receipt Date: 20120717
  Transmission Date: 20120928
  Serious: Yes (Death, Life-Threatening, Hospitalization, Other)
  Sender: FDA-Public Use
  Company Number: US-ELI_LILLY_AND_COMPANY-US201008004087

PATIENT
  Sex: Female
  Weight: 87.528 kg

DRUGS (25)
  1. FORTEO [Suspect]
     Dosage: 20 UG, DAILY (1/D)
     Route: 058
     Dates: end: 20120712
  2. FORTEO [Suspect]
     Dosage: 20 UG, DAILY (1/D)
     Route: 058
  3. PREDNISONE [Concomitant]
     Dosage: 10 MG, QD
     Dates: start: 20081124
  4. FORTEO [Suspect]
     Dosage: 20 UG, DAILY (1/D)
     Route: 058
  5. METOPROLOL TARTRATE [Concomitant]
     Dosage: 25 MG, BID
     Dates: start: 20110620
  6. HEMATOGENE [Concomitant]
     Dosage: UNK, BID
     Dates: start: 20110323
  7. CITRACAL                           /00751520/ [Concomitant]
     Dosage: UNK, BID
     Dates: start: 20101229
  8. POTASSIUM CHLORIDE [Concomitant]
     Dosage: 20 MEQ, QD PRN
     Dates: start: 20100120
  9. LORTAB [Concomitant]
     Dosage: UNK, PRN 1 TAB 4 TIMES DAILY
     Dates: start: 20120119
  10. LISINOPRIL [Concomitant]
     Dosage: 5 MG, QD
     Dates: start: 20110816
  11. VITAMIN D [Concomitant]
     Dosage: 50000 U, 3/W
     Dates: start: 20101108
  12. ASPIRIN [Concomitant]
     Dosage: 81 MG, BID
     Dates: start: 20090325
  13. FISH OIL [Concomitant]
     Dosage: 850 MG, BID
     Dates: start: 20080128
  14. FORTEO [Suspect]
     Indication: OSTEOPOROSIS
     Dosage: 20 UG, DAILY (1/D)
     Route: 058
     Dates: start: 20100726
  15. LOMOTIL [Concomitant]
     Dosage: 2.5 MG, EVERY 6 HRS PRN
     Dates: start: 20110629
  16. BUMEX [Concomitant]
     Dosage: 2 MG, QD PRN
     Dates: start: 20110620
  17. COUMADIN [Concomitant]
     Dosage: 2 MG, OTHER
     Dates: start: 20110530
  18. VITAMIN B-12 [Concomitant]
     Dosage: 1000 UG, MONTHLY (1/M)
     Dates: start: 20110524
  19. CALCITRIOL [Concomitant]
     Dosage: 500 MG, BID
     Dates: start: 20110225
  20. PROTONIX [Concomitant]
     Dosage: 40 MG, QD
     Dates: start: 20100719
  21. PHENERGAN HCL [Concomitant]
     Dosage: 25 MG, EVERY 6 HRS 1/2 TAB PRN
     Dates: start: 20100318
  22. NITROSTAT [Concomitant]
     Dosage: 0.4 MG, OTHER PRN
     Dates: start: 20100120
  23. MULTI-VITAMINS [Concomitant]
     Dosage: UNK, QD
     Dates: start: 20090618
  24. ROCALTROL [Concomitant]
     Dosage: 1 UG, QD
     Dates: start: 20110201
  25. ACYCLOVIR [Concomitant]
     Dosage: 400 MG, TID PRN
     Dates: start: 20110722

REACTIONS (13)
  - LEUKOCYTOCLASTIC VASCULITIS [None]
  - INJECTION SITE PAIN [None]
  - OEDEMA PERIPHERAL [None]
  - PAIN IN EXTREMITY [None]
  - THROMBOSIS [None]
  - LOSS OF CONSCIOUSNESS [None]
  - PYREXIA [None]
  - VOMITING [None]
  - LIMB INJURY [None]
  - BACK PAIN [None]
  - DEATH [None]
  - MALAISE [None]
  - DIARRHOEA [None]
